FAERS Safety Report 17510156 (Version 2)
Quarter: 2020Q1

REPORT INFORMATION
  Report Type: Spontaneous
  Country: US (occurrence: US)
  Receive Date: 20200306
  Receipt Date: 20200320
  Transmission Date: 20200409
  Serious: Yes (Hospitalization)
  Sender: FDA-Public Use
  Company Number: US-PFIZER INC-2020098622

PATIENT
  Age: 84 Year
  Sex: Male
  Weight: 81.65 kg

DRUGS (15)
  1. VYNDAQEL [Suspect]
     Active Substance: TAFAMIDIS MEGLUMINE
     Indication: AMYLOIDOSIS
     Dosage: 80 MG, DAILY
     Route: 048
     Dates: start: 201907
  2. ELIQUIS [Concomitant]
     Active Substance: APIXABAN
     Indication: BLOOD PRESSURE ABNORMAL
     Dosage: UNK, 1X/DAY
     Route: 048
  3. METOPROLOL TARTRATE. [Concomitant]
     Active Substance: METOPROLOL TARTRATE
     Indication: BLOOD PRESSURE ABNORMAL
     Dosage: 25 MG, 2 HALF TABLET TWICE A DAY
     Route: 048
  4. POTASSIUM [Concomitant]
     Active Substance: POTASSIUM
     Dosage: 10 MG, DAILY
     Route: 048
     Dates: start: 201910
  5. GREEN TEA EXTRACT [Concomitant]
     Dosage: UNK
     Dates: start: 201905
  6. VYNDAQEL [Suspect]
     Active Substance: TAFAMIDIS MEGLUMINE
     Dosage: 20 MG, 1X/DAY
     Dates: start: 202002
  7. DOXYCYCLINE. [Concomitant]
     Active Substance: DOXYCYCLINE
     Dosage: 100 MG, DAILY
     Route: 048
     Dates: start: 201905
  8. VYNDAQEL [Suspect]
     Active Substance: TAFAMIDIS MEGLUMINE
     Dosage: 2 DF, DAILY (2 PER DAY)
  9. METOPROLOL TARTRATE. [Concomitant]
     Active Substance: METOPROLOL TARTRATE
     Dosage: UNK, 2X/DAY (1/2 25 MG AT 2/TIMES DAY)
     Dates: start: 201905
  10. FUROSEMIDE. [Concomitant]
     Active Substance: FUROSEMIDE
     Indication: FLUID RETENTION
     Dosage: 1.5 CAPSULES A DAY
     Route: 048
  11. DOXYCYCLINE MONOHYDRATE [Concomitant]
     Active Substance: DOXYCYCLINE
     Dosage: UNK, 1X/DAY (1-100 MG/DAY)
  12. ELIQUIS [Concomitant]
     Active Substance: APIXABAN
     Dosage: 2.5 MG, 2X/DAY (2/TIMES DAY 1 EACH TIME)
     Dates: start: 201905
  13. TORSEMIDE. [Concomitant]
     Active Substance: TORSEMIDE
     Dosage: UNK, DAILY (1/2 100 MG/DAY)
  14. VYNDAQEL [Suspect]
     Active Substance: TAFAMIDIS MEGLUMINE
     Dosage: 80 MG, DAILY(4 PER DAY AT SAME TIME)
     Dates: start: 201906
  15. VYNDAQEL [Suspect]
     Active Substance: TAFAMIDIS MEGLUMINE
     Dosage: 1 DF, DAILY (1 TAB PER DAY FOR 5 DAYS/1 FOR 3-4 DAYS)
     Dates: end: 20200223

REACTIONS (6)
  - Dyspnoea [Not Recovered/Not Resolved]
  - Gait disturbance [Not Recovered/Not Resolved]
  - Intentional product misuse [Recovered/Resolved]
  - Off label use [Unknown]
  - Malaise [Recovered/Resolved]
  - Product use in unapproved indication [Unknown]

NARRATIVE: CASE EVENT DATE: 201906
